FAERS Safety Report 5381161-7 (Version None)
Quarter: 2007Q3

REPORT INFORMATION
  Report Type: 
  Country: None (occurrence: None)
  Receive Date: 20070706
  Receipt Date: 20070625
  Transmission Date: 20080115
  Serious: Yes (Hospitalization, Other)
  Sender: FDA-Public Use
  Company Number: JP-PFIZER INC-2007049536

PATIENT
  Sex: Male
  Weight: 14 kg

DRUGS (3)
  1. GABAPEN [Suspect]
     Indication: EPILEPSY
     Dosage: DAILY DOSE:560MG-TEXT:15MG/KG
     Route: 048
  2. EXCEGRAN [Interacting]
     Indication: EPILEPSY
     Dosage: DAILY DOSE:200MG
     Route: 048
  3. CLOBAZAM [Concomitant]
     Route: 048
     Dates: start: 20070412, end: 20070510

REACTIONS (7)
  - ANTICONVULSANT DRUG LEVEL INCREASED [None]
  - DRUG INTERACTION [None]
  - HEPATIC FUNCTION ABNORMAL [None]
  - NASOPHARYNGITIS [None]
  - PYREXIA [None]
  - SOMNOLENCE [None]
  - STATUS EPILEPTICUS [None]
